FAERS Safety Report 16713619 (Version 1)
Quarter: 2019Q3

REPORT INFORMATION
  Report Type: Spontaneous
  Country: FR (occurrence: FR)
  Receive Date: 20190819
  Receipt Date: 20190819
  Transmission Date: 20191004
  Serious: Yes (Hospitalization)
  Sender: FDA-Public Use
  Company Number: FR-CHEPLA-C20191711

PATIENT
  Age: 32 Year
  Sex: Female
  Weight: 87 kg

DRUGS (12)
  1. DOXORUBICINE ACCORD [Suspect]
     Active Substance: DOXORUBICIN
     Indication: HODGKIN^S DISEASE
     Route: 041
     Dates: start: 20190626, end: 20190626
  2. ETOPOPHOS [Suspect]
     Active Substance: ETOPOSIDE PHOSPHATE
     Indication: HODGKIN^S DISEASE
     Route: 041
     Dates: start: 20190626, end: 20190626
  3. VINCRISTINE HOSPIRA 2 MG/2 ML, SOLUTION INJECTABLE [Suspect]
     Active Substance: VINCRISTINE SULFATE
     Indication: HODGKIN^S DISEASE
     Route: 041
     Dates: start: 20190703, end: 20190703
  4. GRANOCYTE [Suspect]
     Active Substance: LENOGRASTIM
     Indication: NEUTROPENIA
     Route: 058
     Dates: start: 20190704, end: 20190711
  5. ZELITREX [Suspect]
     Active Substance: VALACYCLOVIR HYDROCHLORIDE
     Indication: ENCEPHALITIS
     Dates: end: 20190707
  6. ZOVIRAX [Suspect]
     Active Substance: ACYCLOVIR
     Indication: ENCEPHALITIS
     Route: 041
     Dates: start: 20190708, end: 20190710
  7. ENDOXAN [Suspect]
     Active Substance: CYCLOPHOSPHAMIDE
     Indication: HODGKIN^S DISEASE
     Route: 041
     Dates: start: 20190626, end: 20190626
  8. CORTANCYL 20 MG, COMPRIME [Suspect]
     Active Substance: PREDNISONE
     Indication: PRODUCT USED FOR UNKNOWN INDICATION
     Route: 048
     Dates: start: 20190626, end: 20190713
  9. CEFEPIME MYLAN 2 G, POUDRE POUR SOLUTION INJECTABLE [Suspect]
     Active Substance: CEFEPIME HYDROCHLORIDE
     Indication: BONE MARROW FAILURE
     Route: 041
     Dates: start: 20190708, end: 20190711
  10. BLEOMYCINE BELLON 15 MG, POUDRE POUR SOLUTION INJECTABLE [Suspect]
     Active Substance: BLEOMYCIN SULFATE
     Indication: HODGKIN^S DISEASE
     Route: 041
     Dates: start: 20190703, end: 20190703
  11. NATULAN 50 MG, GELULE [Suspect]
     Active Substance: PROCARBAZINE HYDROCHLORIDE
     Indication: HODGKIN^S DISEASE
     Route: 048
     Dates: start: 20190626, end: 20190702
  12. FLAGYL [Suspect]
     Active Substance: METRONIDAZOLE\METRONIDAZOLE HYDROCHLORIDE
     Indication: BONE MARROW FAILURE
     Route: 048
     Dates: start: 20190708, end: 20190712

REACTIONS (4)
  - Hypoaesthesia [Recovered/Resolved]
  - Epilepsy [Unknown]
  - Bone marrow failure [Unknown]
  - Paraesthesia [Recovering/Resolving]

NARRATIVE: CASE EVENT DATE: 20190710
